FAERS Safety Report 6641197-2 (Version None)
Quarter: 2010Q1

REPORT INFORMATION
  Report Type: 
  Country: None (occurrence: None)
  Receive Date: 20100318
  Receipt Date: 20100310
  Transmission Date: 20100710
  Serious: Yes (Other)
  Sender: FDA-Public Use
  Company Number: PHEH2008US06117

PATIENT
  Sex: Female
  Weight: 59 kg

DRUGS (10)
  1. ELIDEL [Suspect]
     Indication: ECZEMA
     Dosage: UNK
     Route: 061
     Dates: start: 20030301
  2. SYNTHROID [Concomitant]
     Dosage: UNK
  3. ESTROGEN NOS [Concomitant]
     Dosage: UNK
  4. HERBAL PREPARATION [Concomitant]
     Dosage: UNK
  5. OMEPRAZOLE [Concomitant]
     Indication: GASTROOESOPHAGEAL REFLUX DISEASE
     Dosage: UNK
  6. PEPTIC RELIEF                           /USA/ [Concomitant]
     Dosage: UNK
  7. ALCOHOL [Concomitant]
     Dosage: UNK
  8. CORTISPORIN [Concomitant]
     Dosage: UNK
  9. NASAREL [Concomitant]
     Dosage: UNK
  10. ERYTHROMYCIN [Concomitant]
     Dosage: 400 MG / BID
     Route: 048

REACTIONS (15)
  - ABDOMINAL DISCOMFORT [None]
  - ABDOMINAL WALL MASS [None]
  - BREAST CALCIFICATIONS [None]
  - BREAST MASS [None]
  - CONJUNCTIVITIS [None]
  - EUSTACHIAN TUBE DYSFUNCTION [None]
  - GALLBLADDER POLYP [None]
  - GASTROOESOPHAGEAL REFLUX DISEASE [None]
  - HYPOTHYROIDISM [None]
  - LESION EXCISION [None]
  - LYMPHOMA [None]
  - MYELOPROLIFERATIVE DISORDER [None]
  - OTITIS MEDIA [None]
  - PANCREATIC CYST [None]
  - PEPTIC ULCER [None]
